FAERS Safety Report 4492383-1 (Version None)
Quarter: 2004Q4

REPORT INFORMATION
  Report Type: 
  Country: None (occurrence: None)
  Receive Date: 20041102
  Receipt Date: 20041102
  Transmission Date: 20050328
  Serious: Yes (Hospitalization)
  Sender: FDA-Public Use
  Company Number: None

PATIENT
  Age: 71 Year
  Sex: Female
  Weight: 59.8748 kg

DRUGS (2)
  1. GEMZAR [Suspect]
     Indication: NON-SMALL CELL LUNG CANCER
     Dosage: 1560 MG IV D1, 8
     Route: 042
     Dates: start: 20041008
  2. PACLITAXEL [Suspect]
     Indication: NON-SMALL CELL LUNG CANCER
     Dosage: 312 MG D1 IV
     Route: 042
     Dates: start: 20041008

REACTIONS (4)
  - ABASIA [None]
  - FACIAL PALSY [None]
  - MUSCULAR WEAKNESS [None]
  - STOMATITIS [None]
